FAERS Safety Report 7590395-2 (Version None)
Quarter: 2011Q3

REPORT INFORMATION
  Report Type: 
  Country: None (occurrence: None)
  Receive Date: 20110705
  Receipt Date: 20110624
  Transmission Date: 20111222
  Serious: Yes (Hospitalization, Other)
  Sender: FDA-Public Use
  Company Number: PHHY2011TW56599

PATIENT
  Age: 78 Year
  Sex: Male

DRUGS (2)
  1. WARFARIN SODIUM [Suspect]
     Indication: ATRIAL FIBRILLATION
     Dosage: 3.75 MG, DAILY
  2. QUETIAPINE [Interacting]
     Indication: DELUSION
     Dosage: 12.5 MG, DAILY

REACTIONS (6)
  - CEREBRAL HAEMORRHAGE [None]
  - ALTERED STATE OF CONSCIOUSNESS [None]
  - HEADACHE [None]
  - BRAIN OEDEMA [None]
  - DRUG INTERACTION [None]
  - DIZZINESS [None]
